FAERS Safety Report 5922239-6 (Version None)
Quarter: 2008Q4

REPORT INFORMATION
  Report Type: 
  Country: None (occurrence: None)
  Receive Date: 20081017
  Receipt Date: 20081013
  Transmission Date: 20090506
  Serious: Yes (Other)
  Sender: FDA-Public Use
  Company Number: ES-ROCHE-591608

PATIENT
  Age: 29 Year
  Sex: Male

DRUGS (2)
  1. ANTALGIN [Suspect]
     Indication: HEADACHE
     Route: 065
  2. TRANKIMAZIN [Concomitant]

REACTIONS (1)
  - ANOSMIA [None]
